FAERS Safety Report 15132505 (Version 1)
Quarter: 2018Q3

REPORT INFORMATION
  Report Type: Spontaneous
  Country: JP (occurrence: JP)
  Receive Date: 20180712
  Receipt Date: 20180712
  Transmission Date: 20181010
  Serious: Yes (Hospitalization, Other)
  Sender: FDA-Public Use
  Company Number: JP-AMGEN-JPNNI2018037254

PATIENT
  Age: 59 Year
  Sex: Male

DRUGS (12)
  1. KYPROLIS [Suspect]
     Active Substance: CARFILZOMIB
     Dosage: 80 MG, UNK
     Route: 041
     Dates: start: 20180313, end: 20180314
  2. KYPROLIS [Suspect]
     Active Substance: CARFILZOMIB
     Dosage: 80 MG, UNK
     Route: 041
     Dates: start: 20180327, end: 20180328
  3. DEXART [Suspect]
     Active Substance: DEXAMETHASONE SODIUM PHOSPHATE
     Dosage: 19.8 MG, UNK
     Route: 041
     Dates: start: 20180403, end: 20180404
  4. VALACICLOVIR [Concomitant]
     Active Substance: VALACYCLOVIR HYDROCHLORIDE
     Dosage: UNK
     Dates: start: 20180220, end: 20180411
  5. KYPROLIS [Suspect]
     Active Substance: CARFILZOMIB
     Dosage: 100 MG, UNK
     Route: 041
     Dates: start: 20180227, end: 20180228
  6. DEXART [Suspect]
     Active Substance: DEXAMETHASONE SODIUM PHOSPHATE
     Dosage: 19.8 MG, UNK
     Route: 041
     Dates: start: 20180320, end: 20180320
  7. KYPROLIS [Suspect]
     Active Substance: CARFILZOMIB
     Indication: PLASMA CELL MYELOMA
     Dosage: 36 MG, UNK
     Route: 041
     Dates: start: 20180220, end: 20180221
  8. DEXART [Suspect]
     Active Substance: DEXAMETHASONE SODIUM PHOSPHATE
     Dosage: 19.8 MG, UNK
     Route: 041
     Dates: start: 20180227, end: 20180228
  9. DEXART [Suspect]
     Active Substance: DEXAMETHASONE SODIUM PHOSPHATE
     Dosage: 19.8 MG, UNK
     Route: 041
     Dates: start: 20180313, end: 20180314
  10. BAKTAR [Concomitant]
     Active Substance: SULFAMETHOXAZOLE\TRIMETHOPRIM
     Dosage: UNK
     Dates: start: 20180220, end: 20180411
  11. DEXART [Suspect]
     Active Substance: DEXAMETHASONE SODIUM PHOSPHATE
     Dosage: 19.8 MG, UNK
     Route: 041
     Dates: start: 20180322, end: 20180322
  12. DEXART [Suspect]
     Active Substance: DEXAMETHASONE SODIUM PHOSPHATE
     Indication: PLASMA CELL MYELOMA
     Dosage: 19.8 MG, UNK
     Route: 041
     Dates: start: 20180221, end: 20180222

REACTIONS (3)
  - Brain natriuretic peptide increased [Recovered/Resolved]
  - Neuropathy peripheral [Recovered/Resolved]
  - Hypertension [Recovered/Resolved]

NARRATIVE: CASE EVENT DATE: 20180228
